FAERS Safety Report 7662849-1 (Version None)
Quarter: 2011Q3

REPORT INFORMATION
  Report Type: 
  Country: None (occurrence: None)
  Receive Date: 20110805
  Receipt Date: 20100914
  Transmission Date: 20111222
  Serious: No
  Sender: FDA-Public Use
  Company Number: US-ABBOTT-10P-163-0670751-00

PATIENT
  Sex: Male
  Weight: 97.61 kg

DRUGS (4)
  1. WARFARIN SODIUM [Concomitant]
     Indication: PRODUCT USED FOR UNKNOWN INDICATION
  2. METFORMIN HCL [Concomitant]
     Indication: PRODUCT USED FOR UNKNOWN INDICATION
  3. DILTIAZEM [Concomitant]
     Indication: PRODUCT USED FOR UNKNOWN INDICATION
  4. NIASPAN [Suspect]
     Indication: BLOOD TRIGLYCERIDES INCREASED
     Dosage: AT BEDTIME

REACTIONS (6)
  - SKIN DISORDER [None]
  - DIARRHOEA [None]
  - RASH PAPULAR [None]
  - BLOOD GLUCOSE INCREASED [None]
  - NONSPECIFIC REACTION [None]
  - NAUSEA [None]
